FAERS Safety Report 8473444-9 (Version None)
Quarter: 2012Q2

REPORT INFORMATION
  Report Type: 
  Country: None (occurrence: None)
  Receive Date: 20120628
  Receipt Date: 20120615
  Transmission Date: 20120825
  Serious: Yes (Hospitalization)
  Sender: FDA-Public Use
  Company Number: CO-ELI_LILLY_AND_COMPANY-CO201206006164

PATIENT
  Age: 52 Year
  Sex: Female

DRUGS (6)
  1. LOSARTAN POTASSIUM [Concomitant]
  2. ACETAMINOPHEN [Concomitant]
  3. HYDROCHLOROTHIAZIDE [Concomitant]
  4. LYRICA [Concomitant]
  5. TRAMADOL HCL [Concomitant]
  6. HUMALOG [Suspect]
     Indication: TYPE 2 DIABETES MELLITUS
     Dosage: 30 U, QD
     Route: 058
     Dates: start: 20120301

REACTIONS (1)
  - ERYTHEMA [None]
